FAERS Safety Report 5019851-8 (Version None)
Quarter: 2006Q2

REPORT INFORMATION
  Report Type: 
  Country: None (occurrence: None)
  Receive Date: 20060605
  Receipt Date: 20060605
  Transmission Date: 20061013
  Serious: Yes (Other)
  Sender: FDA-Public Use
  Company Number: None

PATIENT
  Sex: Female
  Weight: 22.2263 kg

DRUGS (10)
  1. LEVOFLOXACIN [Suspect]
     Indication: BACTERAEMIA
     Dosage: 220 MG Q 24 H IV
     Route: 042
  2. LEVOFLOXACIN [Suspect]
     Indication: BETA HAEMOLYTIC STREPTOCOCCAL INFECTION
     Dosage: 220 MG Q 24 H IV
     Route: 042
  3. LEVOFLOXACIN [Suspect]
     Indication: PATHOGEN RESISTANCE
     Dosage: 220 MG Q 24 H IV
     Route: 042
  4. LEVOFLOXACIN [Suspect]
     Indication: PNEUMONIA
     Dosage: 220 MG Q 24 H IV
     Route: 042
  5. . [Concomitant]
  6. . [Concomitant]
  7. LEVETIRACETAM [Concomitant]
  8. CLONAZEPAM [Concomitant]
  9. FELBATOL [Concomitant]
  10. TOPIRAMATE [Concomitant]

REACTIONS (1)
  - STATUS EPILEPTICUS [None]
